FAERS Safety Report 8612906-8 (Version None)
Quarter: 2012Q3

REPORT INFORMATION
  Report Type: 
  Country: None (occurrence: None)
  Receive Date: 20120822
  Receipt Date: 20120809
  Transmission Date: 20120928
  Serious: Yes (Disabling, Other)
  Sender: FDA-Public Use
  Company Number: CHPA2012US017922

PATIENT
  Age: 47 Year
  Sex: Female

DRUGS (3)
  1. EXCEDRIN (MIGRAINE) [Suspect]
     Indication: HEADACHE
     Dosage: UNK, UNK
     Route: 048
     Dates: end: 20120115
  2. PRILOSEC [Concomitant]
     Dosage: UNK, QD
     Route: 048
  3. AMITIZA [Concomitant]
     Dosage: UNK, UNK
     Route: 048
     Dates: start: 20120801

REACTIONS (5)
  - ABDOMINAL PAIN UPPER [None]
  - PAIN [None]
  - IMPAIRED WORK ABILITY [None]
  - IRRITABLE BOWEL SYNDROME [None]
  - GASTRIC DISORDER [None]
